FAERS Safety Report 24075931 (Version 2)
Quarter: 2024Q3

REPORT INFORMATION
  Report Type: Spontaneous
  Country: US (occurrence: US)
  Receive Date: 20240710
  Receipt Date: 20240716
  Transmission Date: 20241017
  Serious: Yes (Hospitalization, Other)
  Sender: PFIZER
  Company Number: US-PFIZER INC-PV202400089265

PATIENT
  Age: 71 Year
  Sex: Male

DRUGS (1)
  1. CARBOPLATIN [Suspect]
     Active Substance: CARBOPLATIN
     Indication: Bladder cancer
     Dosage: 10MG EVERY 3WEEKS (1ML/DAY OF CARBOPLATIN (10MG/ML) FOR 3CONSECUTIVE DAYS)

REACTIONS (2)
  - Optic neuropathy [Unknown]
  - Blindness [Unknown]
